FAERS Safety Report 4317396-1 (Version None)
Quarter: 2004Q1

REPORT INFORMATION
  Report Type: 
  Country: None (occurrence: None)
  Receive Date: 20040312
  Receipt Date: 20031203
  Transmission Date: 20041129
  Serious: Yes (Hospitalization)
  Sender: FDA-Public Use
  Company Number: 2004015759

PATIENT
  Age: 53 Year
  Sex: Male

DRUGS (1)
  1. NEURONTIN [Suspect]
     Indication: ARTHRALGIA
     Dates: start: 20030101

REACTIONS (3)
  - ASTHENIA [None]
  - MULTIPLE SCLEROSIS RELAPSE [None]
  - TREMOR [None]
